FAERS Safety Report 23147402 (Version 1)
Quarter: 2023Q4

REPORT INFORMATION
  Report Type: Spontaneous
  Country: US (occurrence: US)
  Receive Date: 20231106
  Receipt Date: 20231106
  Transmission Date: 20240110
  Serious: Yes (Hospitalization, Other)
  Sender: FDA-Public Use
  Company Number: US-CADILA HEALTHCARE LIMITED-US-ZYDUS-099589

PATIENT

DRUGS (10)
  1. AMANTADINE [Suspect]
     Active Substance: AMANTADINE
     Indication: Major depression
     Dosage: 100 MILLIGRAM, BID
     Dates: start: 20220405
  2. BUPROPION [Suspect]
     Active Substance: BUPROPION
     Indication: Anxiety disorder
     Dosage: 300 MILLIGRAM, QD
     Route: 065
  3. BUPROPION [Suspect]
     Active Substance: BUPROPION
     Dosage: 450 MILLIGRAM
     Route: 065
     Dates: start: 20220301
  4. GABAPENTIN [Suspect]
     Active Substance: GABAPENTIN
     Indication: Post-traumatic headache
     Dosage: 100 MILLIGRAM, TID
     Route: 065
     Dates: start: 20220101
  5. GABAPENTIN [Suspect]
     Active Substance: GABAPENTIN
     Dosage: 200 MILLIGRAM
     Route: 065
  6. GABAPENTIN [Suspect]
     Active Substance: GABAPENTIN
     Dosage: 300 MILLIGRAM, TID
     Route: 065
     Dates: start: 20220210
  7. DULOXETINE [Suspect]
     Active Substance: DULOXETINE
     Indication: Migraine
     Dosage: 40 MILLIGRAM, BID
     Route: 065
     Dates: start: 20211229
  8. DULOXETINE [Suspect]
     Active Substance: DULOXETINE
     Dosage: 40 MILLIGRAM, QD
     Route: 065
  9. ONDANSETRON [Suspect]
     Active Substance: ONDANSETRON
     Indication: Nausea
     Dosage: 20 TAB
     Route: 065
  10. BOTULINUM TOXIN NOS [Concomitant]
     Active Substance: BOTULINUM TOXIN NOS
     Indication: Post-traumatic headache
     Dosage: UNK
     Route: 065
     Dates: start: 20220308

REACTIONS (2)
  - Serotonin syndrome [Recovering/Resolving]
  - Drug ineffective [Unknown]
